FAERS Safety Report 9102432 (Version 2)
Quarter: 2013Q3

REPORT INFORMATION
  Report Type: Spontaneous
  Country: US (occurrence: US)
  Receive Date: 20130218
  Receipt Date: 20130708
  Transmission Date: 20140515
  Serious: No
  Sender: FDA-Public Use
  Company Number: US-BIOGENIDEC-2013BI013036

PATIENT
  Age: 67 Year
  Sex: Female

DRUGS (1)
  1. TYSABRI [Suspect]
     Indication: MULTIPLE SCLEROSIS
     Route: 042
     Dates: start: 20121016

REACTIONS (8)
  - Vision blurred [Recovered/Resolved]
  - Pollakiuria [Not Recovered/Not Resolved]
  - Dysuria [Not Recovered/Not Resolved]
  - Genital infection female [Recovered/Resolved]
  - Micturition disorder [Recovered/Resolved]
  - Blood urine present [Recovered/Resolved]
  - Visual acuity reduced [Recovered/Resolved]
  - Urinary tract infection [Recovered/Resolved with Sequelae]
